FAERS Safety Report 13772295 (Version 1)
Quarter: 2017Q3

REPORT INFORMATION
  Report Type: Spontaneous
  Country: US (occurrence: US)
  Receive Date: 20170720
  Receipt Date: 20170720
  Transmission Date: 20171127
  Serious: No
  Sender: FDA-Public Use
  Company Number: GXBR2017US001358

PATIENT
  Sex: Male
  Weight: 95.24 kg

DRUGS (1)
  1. ENOXAPARIN SODIUM. [Suspect]
     Active Substance: ENOXAPARIN SODIUM
     Indication: ANTICOAGULANT THERAPY
     Dosage: 100 MG, Q12H
     Route: 065
     Dates: start: 20170330, end: 20170402

REACTIONS (1)
  - International normalised ratio increased [Unknown]
